FAERS Safety Report 4817132-6 (Version None)
Quarter: 2005Q3

REPORT INFORMATION
  Report Type: 
  Country: None (occurrence: None)
  Receive Date: 20050929
  Receipt Date: 20050613
  Transmission Date: 20060218
  Serious: No
  Sender: FDA-Public Use
  Company Number: 05P-163-0302964-00

PATIENT
  Age: 46 Year
  Sex: Female
  Weight: 90.7194 kg

DRUGS (7)
  1. HUMIRA [Suspect]
     Indication: RHEUMATOID ARTHRITIS
     Dosage: 40 MG, 1 IN 2 WK, SUBCUTANEOUS
     Route: 058
     Dates: start: 20050301, end: 20050301
  2. BISELECT [Concomitant]
  3. ROSIGLITAZONE MALEATE [Concomitant]
  4. METFORMIN HCL [Concomitant]
  5. ATORVASTATIN CALCIUM [Concomitant]
  6. CELECOXIB [Concomitant]
  7. PRANDIN [Concomitant]

REACTIONS (2)
  - MUMPS [None]
  - RESPIRATORY TRACT INFECTION [None]
